FAERS Safety Report 10288441 (Version 2)
Quarter: 2014Q3

REPORT INFORMATION
  Report Type: Spontaneous
  Country: DK (occurrence: FR)
  Receive Date: 20140709
  Receipt Date: 20140722
  Transmission Date: 20150326
  Serious: Yes (Death)
  Sender: FDA-Public Use
  Company Number: FR-FRI-1000068769

PATIENT
  Age: 88 Year
  Sex: Female

DRUGS (5)
  1. BISOPROLOL [Concomitant]
     Active Substance: BISOPROLOL
     Dosage: 1 DF
  2. LASILIX [Concomitant]
     Active Substance: FUROSEMIDE
     Dosage: 1 DF
     Route: 048
  3. ESCITALOPRAM [Suspect]
     Active Substance: ESCITALOPRAM OXALATE
     Dosage: 10 MG
     Route: 048
     Dates: end: 20140530
  4. XARELTO [Suspect]
     Active Substance: RIVAROXABAN
     Dosage: 15 MG
     Route: 048
     Dates: end: 20140530
  5. ALDACTONE [Concomitant]
     Active Substance: SPIRONOLACTONE
     Dosage: 1 DF ON EVEN DAYS
     Route: 048

REACTIONS (3)
  - Rectal haemorrhage [Fatal]
  - Melaena [Fatal]
  - Anaemia [Fatal]

NARRATIVE: CASE EVENT DATE: 201405
